FAERS Safety Report 9331756 (Version 1)
Quarter: 2013Q2

REPORT INFORMATION
  Report Type: Spontaneous
  Country: US (occurrence: None)
  Receive Date: 20130603
  Receipt Date: 20130603
  Transmission Date: 20140414
  Serious: Yes (Other)
  Sender: FDA-Public Use
  Company Number: DSU-2013-03475

PATIENT
  Age: 40 Year
  Sex: Male
  Weight: 136.08 kg

DRUGS (2)
  1. AZOR [Suspect]
     Indication: HYPERTENSION
     Dosage: MORE THAN FIVE YEARS
  2. TEKTURNA HCT (ALISKIREN AND HYDROCHLOROTHIAZIDE) (ALISKIREN AND HYDROCHLOROTHIAZIDE) [Concomitant]

REACTIONS (5)
  - Dyspnoea [None]
  - Dizziness [None]
  - Confusional state [None]
  - Back pain [None]
  - Flushing [None]
